FAERS Safety Report 7801577-6 (Version None)
Quarter: 2011Q4

REPORT INFORMATION
  Report Type: 
  Country: None (occurrence: None)
  Receive Date: 20111007
  Receipt Date: 20110929
  Transmission Date: 20120403
  Serious: Yes (Hospitalization, Other)
  Sender: FDA-Public Use
  Company Number: US-CELGENEUS-163-21880-11093811

PATIENT
  Sex: Male
  Weight: 78.542 kg

DRUGS (5)
  1. FLOMAX [Concomitant]
     Route: 065
  2. REVLIMID [Suspect]
     Indication: MULTIPLE MYELOMA
     Dosage: 25 MILLIGRAM
     Route: 048
     Dates: start: 20110815
  3. ULTRAM [Concomitant]
     Indication: PAIN
     Route: 065
  4. VITAMIN TAB [Concomitant]
     Route: 065
  5. ANTIBIOTIC [Concomitant]
     Route: 065

REACTIONS (2)
  - BACK PAIN [None]
  - FRACTURE [None]
